FAERS Safety Report 9326117 (Version 3)
Quarter: 2013Q2

REPORT INFORMATION
  Report Type: Spontaneous
  Country: JP (occurrence: JP)
  Receive Date: 20130604
  Receipt Date: 20130618
  Transmission Date: 20140414
  Serious: Yes (Other)
  Sender: FDA-Public Use
  Company Number: JP-ELI_LILLY_AND_COMPANY-JP201305008708

PATIENT
  Age: 37 Year
  Sex: Male
  Weight: 82 kg

DRUGS (6)
  1. CYMBALTA [Suspect]
     Indication: BACK PAIN
     Dosage: 20 MG, QD
     Route: 048
     Dates: start: 20121011, end: 20121211
  2. WARFARIN [Interacting]
     Indication: DEEP VEIN THROMBOSIS
     Dosage: 5 MG, QD
     Dates: start: 2007
  3. WARFARIN [Interacting]
     Dosage: 2.5 MG, QD
     Dates: end: 20121211
  4. WARFARIN [Interacting]
     Dosage: UNK
     Route: 048
     Dates: start: 20130122
  5. OMEPRAL [Concomitant]
     Indication: GASTROOESOPHAGEAL REFLUX DISEASE
     Dosage: 10 MG, QD
     Route: 048
     Dates: start: 2008
  6. CELECOX [Concomitant]
     Indication: BACK PAIN
     Dosage: 100 MG, BID
     Route: 048
     Dates: start: 2010

REACTIONS (3)
  - International normalised ratio increased [Recovered/Resolved]
  - Drug interaction [Unknown]
  - Off label use [Recovered/Resolved]
